FAERS Safety Report 15838844 (Version 1)
Quarter: 2019Q1

REPORT INFORMATION
  Report Type: Not Available
  Country: US (occurrence: US)
  Receive Date: 20190117
  Receipt Date: 20190117
  Transmission Date: 20190417
  Serious: Yes (Other)
  Sender: FDA-Public Use
  Company Number: US-ANIPHARMA-2019-US-000500

PATIENT
  Age: 58 Year
  Sex: Female

DRUGS (12)
  1. HERCEPTIN [Suspect]
     Active Substance: TRASTUZUMAB
  2. TAMOXIFEN [Suspect]
     Active Substance: TAMOXIFEN
  3. CARBOPLATIN. [Suspect]
     Active Substance: CARBOPLATIN
  4. ARIMIDEX [Suspect]
     Active Substance: ANASTROZOLE
     Indication: BREAST CANCER
     Route: 048
     Dates: start: 2015, end: 2017
  5. PERTUZUMAB. [Suspect]
     Active Substance: PERTUZUMAB
     Dates: start: 201705
  6. OMEPRAZOLE. [Concomitant]
     Active Substance: OMEPRAZOLE
  7. TRASTUZAMAB [Suspect]
     Active Substance: TRASTUZUMAB
     Dates: start: 201705
  8. TAXOTERE [Suspect]
     Active Substance: DOCETAXEL
  9. IBUPROFEN. [Concomitant]
     Active Substance: IBUPROFEN
  10. SENNA [Concomitant]
     Active Substance: SENNA LEAF\SENNOSIDES\SENNOSIDES A AND B
  11. LIPITOR [Concomitant]
     Active Substance: ATORVASTATIN CALCIUM
  12. ZANTAC [Concomitant]
     Active Substance: RANITIDINE HYDROCHLORIDE

REACTIONS (3)
  - Pneumothorax [Unknown]
  - Drug ineffective [Recovered/Resolved]
  - Metastatic neoplasm [Unknown]
